FAERS Safety Report 24214292 (Version 3)
Quarter: 2024Q4

REPORT INFORMATION
  Report Type: Spontaneous
  Country: US (occurrence: US)
  Receive Date: 20240815
  Receipt Date: 20241009
  Transmission Date: 20250115
  Serious: No
  Sender: CALLIDITAS THERAPEUTICS
  Company Number: US-Calliditas-2024CAL01479

PATIENT
  Age: 70 Year
  Sex: Male
  Weight: 113 kg

DRUGS (8)
  1. TARPEYO [Suspect]
     Active Substance: BUDESONIDE
     Indication: IgA nephropathy
     Route: 048
     Dates: start: 20231017
  2. FUROSEMIDE [Concomitant]
     Active Substance: FUROSEMIDE
  3. ELIQUIS [Concomitant]
     Active Substance: APIXABAN
  4. ALBUTEROL [Concomitant]
     Active Substance: ALBUTEROL
  5. FOLIC ACID [Concomitant]
     Active Substance: FOLIC ACID
  6. CARVEDILOL [Concomitant]
     Active Substance: CARVEDILOL
  7. TRAZODONE [Concomitant]
     Active Substance: TRAZODONE HYDROCHLORIDE
  8. FISH OIL [Concomitant]
     Active Substance: FISH OIL

REACTIONS (8)
  - Muscle discomfort [Not Recovered/Not Resolved]
  - Fatigue [Not Recovered/Not Resolved]
  - Haemoglobin decreased [Not Recovered/Not Resolved]
  - Oedema [Not Recovered/Not Resolved]
  - Swelling face [Not Recovered/Not Resolved]
  - Peripheral swelling [Not Recovered/Not Resolved]
  - Increased tendency to bruise [Not Recovered/Not Resolved]
  - Asthenia [Not Recovered/Not Resolved]

NARRATIVE: CASE EVENT DATE: 20231030
